FAERS Safety Report 4789801-8 (Version None)
Quarter: 2005Q4

REPORT INFORMATION
  Report Type: 
  Country: None (occurrence: None)
  Receive Date: 20051006
  Receipt Date: 20050919
  Transmission Date: 20060501
  Serious: Yes (Life-Threatening, Hospitalization)
  Sender: FDA-Public Use
  Company Number: AT-GLAXOSMITHKLINE-B0394796A

PATIENT
  Age: 80 Year
  Sex: Female
  Weight: 79 kg

DRUGS (3)
  1. AVANDAMET [Suspect]
     Indication: DIABETES MELLITUS NON-INSULIN-DEPENDENT
     Dosage: 2TABS PER DAY
     Route: 065
     Dates: start: 20050914, end: 20050916
  2. EUGLUCON [Concomitant]
     Indication: DIABETES MELLITUS
     Route: 048
  3. GLUCOPHAGE [Concomitant]
     Indication: DIABETES MELLITUS
     Route: 048

REACTIONS (1)
  - ACUTE CORONARY SYNDROME [None]
